FAERS Safety Report 7250769-6 (Version None)
Quarter: 2011Q1

REPORT INFORMATION
  Report Type: 
  Country: None (occurrence: None)
  Receive Date: 20110128
  Receipt Date: 20110118
  Transmission Date: 20110831
  Serious: Yes (Other)
  Sender: FDA-Public Use
  Company Number: US-ABBOTT-08P-163-0471833-00

PATIENT
  Age: 10 Year
  Sex: Female

DRUGS (14)
  1. CYCLOPHOSPHAMIDE [Suspect]
     Indication: JUVENILE ARTHRITIS
     Route: 042
  2. ADALIMUMAB [Suspect]
     Indication: JUVENILE ARTHRITIS
  3. INFLIXIMAB [Suspect]
     Indication: JUVENILE ARTHRITIS
     Route: 042
  4. LEFLUNOMIDE [Suspect]
     Indication: JUVENILE ARTHRITIS
  5. KINERET [Suspect]
     Indication: JUVENILE ARTHRITIS
  6. PREDNISONE [Suspect]
     Indication: JUVENILE ARTHRITIS
     Dosage: UNSPECIFIED LOW DOSE
  7. THALIDOMIDE [Suspect]
     Indication: JUVENILE ARTHRITIS
  8. RITUXIMAB [Suspect]
     Indication: JUVENILE ARTHRITIS
  9. NAPROXEN [Concomitant]
     Indication: PRODUCT USED FOR UNKNOWN INDICATION
  10. METHOTREXATE [Suspect]
     Indication: JUVENILE ARTHRITIS
  11. METHADONE [Concomitant]
     Indication: PRODUCT USED FOR UNKNOWN INDICATION
  12. ENBREL [Suspect]
     Indication: JUVENILE ARTHRITIS
  13. INFLIXIMAB [Suspect]
     Route: 042
  14. INFLIXIMAB [Suspect]
     Route: 042

REACTIONS (1)
  - HODGKIN'S DISEASE STAGE II [None]
